FAERS Safety Report 5602795-8 (Version None)
Quarter: 2008Q1

REPORT INFORMATION
  Report Type: 
  Country: None (occurrence: None)
  Receive Date: 20080125
  Receipt Date: 20080115
  Transmission Date: 20080703
  Serious: Yes (Other)
  Sender: FDA-Public Use
  Company Number: US-WYE-H02126808

PATIENT
  Sex: Male
  Weight: 36.2 kg

DRUGS (1)
  1. BENEFIX [Suspect]
     Dosage: ^1100 UNITS^
     Route: 042
     Dates: start: 19970101

REACTIONS (3)
  - DRUG EFFECT DECREASED [None]
  - HAEMARTHROSIS [None]
  - MOUTH HAEMORRHAGE [None]
